FAERS Safety Report 9492881 (Version 2)
Quarter: 2013Q4

REPORT INFORMATION
  Report Type: Spontaneous
  Country: US (occurrence: US)
  Receive Date: 20130901
  Receipt Date: 20131024
  Transmission Date: 20140711
  Serious: No
  Sender: FDA-Public Use
  Company Number: US-009507513-1308USA013960

PATIENT
  Sex: Female

DRUGS (5)
  1. DULERA [Suspect]
     Indication: EMPHYSEMA
     Dosage: ONE PUFF TWICE DAILY
     Route: 055
     Dates: start: 201208
  2. HYDROMORPHONE [Concomitant]
  3. XANAX [Concomitant]
  4. TRAZODONE HYDROCHLORIDE [Concomitant]
  5. ZYRTEC [Concomitant]

REACTIONS (4)
  - Increased upper airway secretion [Not Recovered/Not Resolved]
  - Dyspnoea [Not Recovered/Not Resolved]
  - Drug dose omission [Unknown]
  - Product quality issue [Unknown]
